FAERS Safety Report 18608738 (Version 18)
Quarter: 2022Q4

REPORT INFORMATION
  Report Type: Report from Study
  Country: IN (occurrence: IN)
  Receive Date: 20201213
  Receipt Date: 20221218
  Transmission Date: 20230112
  Serious: Yes (Death, Life-Threatening, Hospitalization)
  Sender: FDA-Public Use
  Company Number: NVSC2020IN310682

PATIENT
  Age: 66 Year
  Sex: Male
  Weight: 69.5 kg

DRUGS (20)
  1. CAPMATINIB [Suspect]
     Active Substance: CAPMATINIB
     Indication: Non-small cell lung cancer
     Dosage: 800 MG, BID (2 TIMES PER DAY)
     Route: 048
     Dates: start: 20201013, end: 20201118
  2. PEMBROLIZUMAB [Suspect]
     Active Substance: PEMBROLIZUMAB
     Indication: Non-small cell lung cancer
     Dosage: 200 MG
     Route: 042
     Dates: start: 20201013
  3. TEICOPLANIN [Concomitant]
     Active Substance: TEICOPLANIN
     Indication: Dyspnoea
     Dosage: UNK
     Route: 065
     Dates: start: 20201118, end: 20201119
  4. DUOLIN [Concomitant]
     Indication: Dyspnoea
     Dosage: UNK
     Route: 065
     Dates: start: 20201118, end: 20201119
  5. MOISOL [Concomitant]
     Indication: Prophylaxis
     Dosage: UNK
     Route: 065
     Dates: start: 20201118, end: 20201118
  6. FENTANYL [Concomitant]
     Active Substance: FENTANYL
     Indication: Dyspnoea
     Dosage: UNK
     Route: 065
     Dates: start: 20201118, end: 20201118
  7. ATRACURIUM [Concomitant]
     Active Substance: ATRACURIUM
     Indication: Dyspnoea
     Dosage: UNK
     Route: 065
     Dates: start: 20201118, end: 20201119
  8. ATRACURIUM [Concomitant]
     Active Substance: ATRACURIUM
     Indication: General physical condition
  9. INSULIN HUMAN [Concomitant]
     Active Substance: INSULIN HUMAN
     Indication: Dyspnoea
     Dosage: UNK
     Route: 065
     Dates: start: 20201118, end: 20201119
  10. A-Z [Concomitant]
     Indication: General physical condition
     Dosage: UNK
     Route: 065
     Dates: start: 20200919, end: 20201118
  11. COREX T [Concomitant]
     Indication: Cough
     Dosage: UNK
     Route: 065
     Dates: start: 20200919, end: 20201118
  12. MET XL [Concomitant]
     Indication: General physical condition
     Dosage: UNK
     Route: 065
     Dates: start: 20200923, end: 20201118
  13. PAN [Concomitant]
     Indication: Prophylaxis
     Dosage: UNK
     Route: 065
     Dates: start: 20201118, end: 20201119
  14. PAN [Concomitant]
     Indication: General physical condition
     Dosage: TABLET
     Route: 065
     Dates: start: 20200930, end: 20201118
  15. BUDESONIDE [Concomitant]
     Active Substance: BUDESONIDE
     Indication: Dyspnoea
     Dosage: UNK
     Route: 065
     Dates: start: 20201118, end: 20201119
  16. TAMIFLU [Concomitant]
     Active Substance: OSELTAMIVIR PHOSPHATE
     Indication: Antiviral prophylaxis
     Dosage: UNK
     Route: 065
     Dates: start: 20201118, end: 20201119
  17. PIPERACILLIN AND TAZOBACTAM [Concomitant]
     Active Substance: PIPERACILLIN SODIUM\TAZOBACTAM SODIUM
     Indication: Dyspnoea
     Dosage: UNK
     Route: 065
     Dates: start: 20201118, end: 20201118
  18. SEPTRAN [Concomitant]
     Indication: Dyspnoea
     Dosage: UNK
     Route: 065
     Dates: start: 20201118, end: 20201119
  19. METHYLPREDNISOLONE [Concomitant]
     Active Substance: METHYLPREDNISOLONE
     Indication: Dyspnoea
     Dosage: UNK
     Route: 065
     Dates: start: 20201118, end: 20201119
  20. MEROPENEM [Concomitant]
     Active Substance: MEROPENEM
     Indication: Dyspnoea
     Dosage: UNK
     Route: 065
     Dates: start: 20201118, end: 20201119

REACTIONS (1)
  - Pneumonitis [Fatal]

NARRATIVE: CASE EVENT DATE: 20201118
